FAERS Safety Report 25531104 (Version 5)
Quarter: 2025Q4

REPORT INFORMATION
  Report Type: Spontaneous
  Country: US (occurrence: US)
  Receive Date: 20250708
  Receipt Date: 20251208
  Transmission Date: 20260118
  Serious: Yes (Hospitalization)
  Sender: DAIICHI
  Company Number: US-DAIICHI SANKYO, INC.-DS-2025-150898-USAA

PATIENT
  Age: 68 Year
  Sex: Male

DRUGS (3)
  1. VANFLYTA [Suspect]
     Active Substance: QUIZARTINIB DIHYDROCHLORIDE
     Indication: Acute myeloid leukaemia
     Dosage: 17.7 MG, BID (2 TABLETS ONCE DAILY FOR 14 DAYS OF A 28 DAYS CYCLE)
     Route: 048
     Dates: start: 20250612
  2. VANFLYTA [Suspect]
     Active Substance: QUIZARTINIB DIHYDROCHLORIDE
     Dosage: 26.5 MG, QD
     Route: 048
     Dates: start: 20250612
  3. VANFLYTA [Suspect]
     Active Substance: QUIZARTINIB DIHYDROCHLORIDE
     Dosage: 26.5 MG (1 TABLET ONCE A DAY FOR 14 DAYS, THEN 2 TABLETS DAILY FOR 14 DAYS OF 28 DAY CYCLE)
     Route: 048
     Dates: start: 20250612

REACTIONS (7)
  - Deep vein thrombosis [Not Recovered/Not Resolved]
  - Transplant [Not Recovered/Not Resolved]
  - Infection [Unknown]
  - Tachycardia [Unknown]
  - Ventricular extrasystoles [Unknown]
  - Nasopharyngitis [Not Recovered/Not Resolved]
  - Electrocardiogram abnormal [Not Recovered/Not Resolved]

NARRATIVE: CASE EVENT DATE: 20250828
